FAERS Safety Report 11833772 (Version 5)
Quarter: 2016Q1

REPORT INFORMATION
  Report Type: Report from Study
  Country: CA (occurrence: CA)
  Receive Date: 20151214
  Receipt Date: 20160202
  Transmission Date: 20160525
  Serious: Yes (Hospitalization)
  Sender: FDA-Public Use
  Company Number: PHHY2015CA143133

PATIENT
  Age: 47 Year
  Sex: Female

DRUGS (3)
  1. AFINITOR [Suspect]
     Active Substance: EVEROLIMUS
     Indication: NEUROENDOCRINE TUMOUR
     Dosage: 10 MG DAILY
     Route: 048
     Dates: start: 20130411
  2. SANDOSTATIN LAR DEPOT [Suspect]
     Active Substance: OCTREOTIDE ACETATE
     Indication: NEUROENDOCRINE TUMOUR
     Dosage: 30 MG, EVERY 3 WEEKS
     Route: 030
     Dates: start: 20121115, end: 20151007
  3. BISOPROLOL [Concomitant]
     Active Substance: BISOPROLOL
     Indication: PRODUCT USED FOR UNKNOWN INDICATION
     Route: 065

REACTIONS (11)
  - Chest pain [Unknown]
  - Product quality issue [Unknown]
  - Dyspepsia [Unknown]
  - Fluid retention [Unknown]
  - Gait disturbance [Unknown]
  - Dyspnoea [Unknown]
  - Vomiting [Unknown]
  - Inappropriate schedule of drug administration [Unknown]
  - Movement disorder [Unknown]
  - Malaise [Unknown]
  - Vein disorder [Unknown]

NARRATIVE: CASE EVENT DATE: 20151029
